FAERS Safety Report 11471746 (Version 2)
Quarter: 2015Q4

REPORT INFORMATION
  Report Type: Report from Study
  Country: AU (occurrence: AU)
  Receive Date: 20150908
  Receipt Date: 20151009
  Transmission Date: 20160304
  Serious: Yes (Hospitalization, Other)
  Sender: FDA-Public Use
  Company Number: PHHY2015AU108137

PATIENT
  Age: 47 Year
  Sex: Male

DRUGS (1)
  1. CLOZARIL [Suspect]
     Active Substance: CLOZAPINE
     Indication: SCHIZOPHRENIA
     Dosage: 625 MG, QD
     Route: 048
     Dates: start: 20040424

REACTIONS (7)
  - Diabetic ketoacidosis [Recovered/Resolved]
  - Sepsis [Unknown]
  - Ulcer [Unknown]
  - Neutrophil count increased [Recovered/Resolved]
  - Leukocytosis [Recovered/Resolved]
  - Pneumonia staphylococcal [Unknown]
  - Starvation [Unknown]

NARRATIVE: CASE EVENT DATE: 20150831
